FAERS Safety Report 6780165-7 (Version None)
Quarter: 2010Q2

REPORT INFORMATION
  Report Type: 
  Country: None (occurrence: None)
  Receive Date: 20100618
  Receipt Date: 20100615
  Transmission Date: 20101027
  Serious: Yes (Death, Other)
  Sender: FDA-Public Use
  Company Number: PHHY2009CA11272

PATIENT
  Sex: Female
  Weight: 37.188 kg

DRUGS (7)
  1. SANDOSTATIN LAR [Suspect]
     Indication: NEOPLASM MALIGNANT
     Dosage: 20 MG, QMO
     Route: 030
     Dates: start: 20081125, end: 20090325
  2. SANDOSTATIN LAR [Suspect]
     Indication: DIARRHOEA
  3. ADVAIR DISKUS 100/50 [Concomitant]
  4. SALBUTAMOL [Concomitant]
  5. SPIRIVA [Concomitant]
  6. LOPERAMIDE [Concomitant]
     Dosage: 2 MG, QID
  7. D-DUR [Concomitant]

REACTIONS (4)
  - DEATH [None]
  - DIARRHOEA [None]
  - DRUG INEFFECTIVE [None]
  - GASTROENTERITIS [None]
